FAERS Safety Report 4447459-1 (Version None)
Quarter: 2004Q3

REPORT INFORMATION
  Report Type: 
  Country: None (occurrence: None)
  Receive Date: 20040913
  Receipt Date: 20040831
  Transmission Date: 20050211
  Serious: Yes (Other)
  Sender: FDA-Public Use
  Company Number: JP-JNJFOC-20040702323

PATIENT
  Sex: Female

DRUGS (11)
  1. REMICADE [Suspect]
     Route: 042
  2. REMICADE [Suspect]
     Route: 042
  3. REMICADE [Suspect]
     Indication: CROHN'S DISEASE
     Route: 042
  4. PREDONINE [Concomitant]
     Indication: CROHN'S DISEASE
  5. PENTASA [Concomitant]
     Indication: CROHN'S DISEASE
  6. ELENTAL [Concomitant]
  7. ELENTAL [Concomitant]
     Indication: CROHN'S DISEASE
  8. GASTER D [Concomitant]
  9. MUCOSTA [Concomitant]
  10. METHOTREXATE [Concomitant]
  11. HYDROCORTISONE SODIUM SUCCINATE [Concomitant]

REACTIONS (4)
  - ANAPHYLACTIC SHOCK [None]
  - BACK PAIN [None]
  - INFUSION RELATED REACTION [None]
  - NAUSEA [None]
